FAERS Safety Report 19914421 (Version 1)
Quarter: 2021Q4

REPORT INFORMATION
  Report Type: Spontaneous
  Country: US (occurrence: US)
  Receive Date: 20211004
  Receipt Date: 20211004
  Transmission Date: 20220303
  Serious: Yes (Other)
  Sender: FDA-Public Use
  Company Number: US-OTSUKA-2020_021539

PATIENT
  Sex: Male

DRUGS (19)
  1. ABILIFY [Suspect]
     Active Substance: ARIPIPRAZOLE
     Indication: Product used for unknown indication
     Dosage: 5 MG, QD
     Route: 065
     Dates: start: 20070509
  2. ABILIFY [Suspect]
     Active Substance: ARIPIPRAZOLE
     Dosage: 10 MG, QD
     Route: 065
     Dates: start: 20070606
  3. ABILIFY [Suspect]
     Active Substance: ARIPIPRAZOLE
     Dosage: 15 MG, QD
     Route: 065
     Dates: start: 20070912
  4. ABILIFY [Suspect]
     Active Substance: ARIPIPRAZOLE
     Dosage: 10 MG, QD
     Route: 065
     Dates: start: 20100927, end: 20121119
  5. ABILIFY [Suspect]
     Active Substance: ARIPIPRAZOLE
     Dosage: 4 MG, QD
     Route: 048
     Dates: start: 20131022
  6. ABILIFY [Suspect]
     Active Substance: ARIPIPRAZOLE
     Dosage: 5 MG, QD (TAKING 10 MG ABILIFY HALF)
     Route: 048
     Dates: start: 20131031, end: 20140905
  7. ABILIFY [Suspect]
     Active Substance: ARIPIPRAZOLE
     Dosage: 2 MG, BID
     Route: 065
     Dates: start: 20141105
  8. ABILIFY [Suspect]
     Active Substance: ARIPIPRAZOLE
     Dosage: 5 MG, QD
     Route: 065
     Dates: start: 20141205
  9. ABILIFY [Suspect]
     Active Substance: ARIPIPRAZOLE
     Dosage: 5 MG, QD (ABILIFY 10 MG HALF)
     Route: 065
     Dates: start: 20150430, end: 201701
  10. LORAZEPAM [Suspect]
     Active Substance: LORAZEPAM
     Indication: Product used for unknown indication
     Dosage: UNK (AS NEEDED)
     Route: 065
  11. WELLBUTRIN [Concomitant]
     Active Substance: BUPROPION HYDROCHLORIDE
     Indication: Depression
     Dosage: UNK
     Route: 065
  12. WELLBUTRIN [Concomitant]
     Active Substance: BUPROPION HYDROCHLORIDE
     Indication: Asthenia
  13. CYMBALTA [Concomitant]
     Active Substance: DULOXETINE HYDROCHLORIDE
     Indication: Depression
     Dosage: UNK
     Route: 065
  14. CYMBALTA [Concomitant]
     Active Substance: DULOXETINE HYDROCHLORIDE
     Indication: Anxiety
  15. LAMICTAL [Concomitant]
     Active Substance: LAMOTRIGINE
     Indication: Depressed mood
     Dosage: UNK
     Route: 065
  16. LEXAPRO [Concomitant]
     Active Substance: ESCITALOPRAM OXALATE
     Indication: Appetite disorder
     Dosage: UNK
     Route: 065
  17. TOPAMAX [Concomitant]
     Active Substance: TOPIRAMATE
     Indication: Appetite disorder
     Dosage: UNK
     Route: 065
  18. DEXEDRINE [Concomitant]
     Active Substance: DEXTROAMPHETAMINE SULFATE
     Indication: Appetite disorder
     Dosage: UNK
     Route: 065
  19. MERIDIA [Concomitant]
     Active Substance: SIBUTRAMINE HYDROCHLORIDE
     Indication: Appetite disorder
     Dosage: UNK
     Route: 065

REACTIONS (26)
  - Suicidal ideation [Unknown]
  - Suicide attempt [Unknown]
  - Overdose [Unknown]
  - Post-traumatic stress disorder [Unknown]
  - Road traffic accident [Unknown]
  - Loss of personal independence in daily activities [Unknown]
  - Eating disorder [Unknown]
  - Blood cholesterol increased [Unknown]
  - Migraine [Unknown]
  - Compulsive sexual behaviour [Recovering/Resolving]
  - Sleep disorder [Recovering/Resolving]
  - Gastrooesophageal reflux disease [Unknown]
  - Asthenia [Unknown]
  - Pain [Unknown]
  - Compulsive shopping [Unknown]
  - Obsessive-compulsive disorder [Recovering/Resolving]
  - Gambling disorder [Recovering/Resolving]
  - Rash [Unknown]
  - Decreased appetite [Unknown]
  - Weight increased [Unknown]
  - Anxiety [Unknown]
  - Mood swings [Unknown]
  - Depression [Unknown]
  - Economic problem [Unknown]
  - Loss of employment [Unknown]
  - Insurance issue [Unknown]

NARRATIVE: CASE EVENT DATE: 20070601
